FAERS Safety Report 17371259 (Version 2)
Quarter: 2020Q3

REPORT INFORMATION
  Report Type: Spontaneous
  Country: JP (occurrence: JP)
  Receive Date: 20200205
  Receipt Date: 20200721
  Transmission Date: 20201102
  Serious: Yes (Other)
  Sender: FDA-Public Use
  Company Number: JP-ABBVIE-20P-087-3262468-00

PATIENT
  Sex: Male

DRUGS (3)
  1. RANMARK [Concomitant]
     Active Substance: DENOSUMAB
     Indication: PRODUCT USED FOR UNKNOWN INDICATION
     Dosage: UNK
     Route: 065
  2. LEUPLIN SR [Suspect]
     Active Substance: LEUPROLIDE ACETATE
     Indication: PROSTATE CANCER STAGE IV
     Dosage: 11.25 MILLIGRAM, Q3MONTHS
     Route: 058
     Dates: start: 201912
  3. GONAX [Suspect]
     Active Substance: DEGARELIX
     Indication: PRODUCT USED FOR UNKNOWN INDICATION
     Dosage: UNK
     Route: 065
     Dates: start: 201911

REACTIONS (1)
  - Myelosuppression [Recovered/Resolved]

NARRATIVE: CASE EVENT DATE: 201912
